FAERS Safety Report 6424716-0 (Version None)
Quarter: 2009Q4

REPORT INFORMATION
  Report Type: 
  Country: None (occurrence: None)
  Receive Date: 20091030
  Receipt Date: 20091030
  Transmission Date: 20100525
  Serious: Yes (Hospitalization)
  Sender: FDA-Public Use
  Company Number: None

PATIENT
  Age: 64 Year

DRUGS (1)
  1. IODIPAMIDE MEGLUMINE [Suspect]
     Indication: COMPUTERISED TOMOGRAM
     Dosage: ONCE
     Dates: start: 20090211, end: 20090211

REACTIONS (2)
  - ANGIOEDEMA [None]
  - FATIGUE [None]
